FAERS Safety Report 16403124 (Version 2)
Quarter: 2019Q3

REPORT INFORMATION
  Report Type: Spontaneous
  Country: JP (occurrence: JP)
  Receive Date: 20190607
  Receipt Date: 20190703
  Transmission Date: 20191004
  Serious: Yes (Life-Threatening)
  Sender: FDA-Public Use
  Company Number: PHJP2019JP004111

PATIENT
  Age: 71 Year
  Sex: Male
  Weight: 46.8 kg

DRUGS (22)
  1. CEFAZOLIN [Concomitant]
     Active Substance: CEFAZOLIN
     Dosage: 1 G, UNK
     Route: 042
     Dates: start: 20190223, end: 20190307
  2. INSULINE GLARGINE [Concomitant]
     Active Substance: INSULIN GLARGINE
     Dosage: 3 OT, UNK
     Route: 058
     Dates: start: 20190403
  3. HUMALOG [Concomitant]
     Active Substance: INSULIN LISPRO
     Dosage: 6 OT, TID
     Route: 058
     Dates: start: 20190210, end: 20190211
  4. HUMALOG [Concomitant]
     Active Substance: INSULIN LISPRO
     Dosage: UNK
     Route: 058
     Dates: start: 20190403
  5. EQUA [Concomitant]
     Active Substance: VILDAGLIPTIN
     Indication: DIABETES MELLITUS
     Dosage: 50 MG, UNK
     Route: 048
  6. EXJADE [Suspect]
     Active Substance: DEFERASIROX
     Indication: IRON OVERLOAD
     Dosage: 125 MG, UNK
     Route: 048
     Dates: start: 20190412
  7. INSULINE GLARGINE [Concomitant]
     Active Substance: INSULIN GLARGINE
     Dosage: 6 OT, UNK
     Route: 058
     Dates: start: 20190315
  8. HUMALOG [Concomitant]
     Active Substance: INSULIN LISPRO
     Dosage: UNK
     Route: 058
     Dates: start: 20190315
  9. CEFAZOLIN [Concomitant]
     Active Substance: CEFAZOLIN
     Indication: URINARY TRACT INFECTION
     Dosage: 1 G, UNK
     Route: 042
     Dates: start: 20190127, end: 20190212
  10. INSULINE GLARGINE [Concomitant]
     Active Substance: INSULIN GLARGINE
     Indication: DIABETES MELLITUS
     Dosage: 4 OT, UNK
     Route: 058
     Dates: start: 20190215, end: 20190217
  11. HUMALOG [Concomitant]
     Active Substance: INSULIN LISPRO
     Dosage: 10 OT, TID
     Route: 058
     Dates: start: 20190213
  12. JANUVIA [Concomitant]
     Active Substance: SITAGLIPTIN PHOSPHATE
     Indication: DIABETES MELLITUS
     Dosage: 50 MG, UNK
     Route: 065
     Dates: start: 20190206, end: 20190321
  13. HUMALOG [Concomitant]
     Active Substance: INSULIN LISPRO
     Dosage: 8 OT, TID
     Route: 058
     Dates: start: 20190212, end: 20190213
  14. INSULINE GLARGINE [Concomitant]
     Active Substance: INSULIN GLARGINE
     Dosage: 6 OT, UNK
     Route: 058
     Dates: start: 20190218, end: 20190402
  15. INSULINE GLARGINE [Concomitant]
     Active Substance: INSULIN GLARGINE
     Dosage: 3 OT, UNK
     Route: 058
     Dates: start: 20190403, end: 20190405
  16. METFORMIN [Concomitant]
     Active Substance: METFORMIN HYDROCHLORIDE
     Indication: DIABETES MELLITUS
     Dosage: 250 MG, UNK
     Route: 048
     Dates: start: 20190301
  17. CEFAZOLIN [Concomitant]
     Active Substance: CEFAZOLIN
     Dosage: 1 G, UNK
     Route: 042
     Dates: start: 20190403, end: 20190407
  18. HUMALOG [Concomitant]
     Active Substance: INSULIN LISPRO
     Indication: DIABETES MELLITUS
     Dosage: 4 OT, TID
     Route: 058
     Dates: start: 20190207, end: 20190209
  19. HUMALOG [Concomitant]
     Active Substance: INSULIN LISPRO
     Dosage: UNK
     Route: 058
     Dates: start: 20190218
  20. JADENU [Suspect]
     Active Substance: DEFERASIROX
     Indication: IRON OVERLOAD
     Dosage: 90 MG, QD
     Route: 048
     Dates: start: 20190228, end: 20190314
  21. INSULINE GLARGINE [Concomitant]
     Active Substance: INSULIN GLARGINE
     Dosage: 2 OT, UNK
     Route: 058
     Dates: start: 20190406
  22. HUMALOG [Concomitant]
     Active Substance: INSULIN LISPRO
     Dosage: 26 OT, UNK
     Route: 058
     Dates: start: 20190215

REACTIONS (4)
  - Liver disorder [Recovering/Resolving]
  - Serum ferritin increased [Recovering/Resolving]
  - Hyperkalaemia [Unknown]
  - Constipation [Recovering/Resolving]

NARRATIVE: CASE EVENT DATE: 20190311
